FAERS Safety Report 21418619 (Version 7)
Quarter: 2023Q1

REPORT INFORMATION
  Report Type: Spontaneous
  Country: JP (occurrence: JP)
  Receive Date: 20221006
  Receipt Date: 20230216
  Transmission Date: 20230417
  Serious: Yes (Death, Disabling, Other)
  Sender: FDA-Public Use
  Company Number: JP-GSKJP-JP2022JPN141540AA

PATIENT

DRUGS (8)
  1. VALTREX [Suspect]
     Active Substance: VALACYCLOVIR HYDROCHLORIDE
     Indication: Ophthalmic herpes simplex
     Dosage: UNK
     Route: 048
  2. ACYCLOVIR [Suspect]
     Active Substance: ACYCLOVIR
     Indication: Ophthalmic herpes simplex
     Dosage: UNK
     Route: 047
  3. ACYCLOVIR [Suspect]
     Active Substance: ACYCLOVIR
     Indication: Infection prophylaxis
     Dosage: 200 MG/DAY
     Route: 048
     Dates: start: 20200814, end: 20210707
  4. NOXAFIL [Concomitant]
     Active Substance: POSACONAZOLE
     Indication: Antifungal prophylaxis
     Dosage: 300 MG/DAY
     Route: 048
     Dates: start: 20200814, end: 20210813
  5. DAIPHEN COMBINATION TABLETS [Concomitant]
     Indication: Antifungal prophylaxis
     Dosage: 1 DF
     Route: 048
     Dates: start: 20200814, end: 20210813
  6. LANSOPRAZOLE [Concomitant]
     Active Substance: LANSOPRAZOLE
     Indication: Hyperchlorhydria
     Dosage: 15 MG
     Route: 048
     Dates: start: 20200814, end: 20210813
  7. MEDROL TABLETS [Concomitant]
     Indication: Immunosuppression
     Dosage: 6 MG/DAY
     Route: 048
     Dates: start: 20200814, end: 20210813
  8. SITAFLOXACIN [Concomitant]
     Active Substance: SITAFLOXACIN
     Indication: Infection prophylaxis
     Dosage: 50 MG/DAY
     Route: 048
     Dates: start: 20200814, end: 20210813

REACTIONS (10)
  - Corneal epithelium defect [Not Recovered/Not Resolved]
  - Pathogen resistance [Not Recovered/Not Resolved]
  - Ocular hyperaemia [Not Recovered/Not Resolved]
  - Ophthalmic herpes simplex [Fatal]
  - Asphyxia [Fatal]
  - Acute lymphocytic leukaemia [Fatal]
  - Condition aggravated [Fatal]
  - General physical health deterioration [Fatal]
  - Graft versus host disease in gastrointestinal tract [Fatal]
  - Ileus [Fatal]

NARRATIVE: CASE EVENT DATE: 20210127
